FAERS Safety Report 5399217-1 (Version None)
Quarter: 2007Q3

REPORT INFORMATION
  Report Type: 
  Country: None (occurrence: None)
  Receive Date: 20070727
  Receipt Date: 20070719
  Transmission Date: 20080115
  Serious: Yes (Other)
  Sender: FDA-Public Use
  Company Number: FR-JNJFOC-20070705420

PATIENT
  Sex: Male

DRUGS (2)
  1. EPITOMAX [Suspect]
     Indication: EPILEPSY
     Route: 048
  2. TEGRETOL [Concomitant]

REACTIONS (1)
  - STATUS EPILEPTICUS [None]
